FAERS Safety Report 21230430 (Version 7)
Quarter: 2023Q1

REPORT INFORMATION
  Report Type: Spontaneous
  Country: JP (occurrence: JP)
  Receive Date: 20220818
  Receipt Date: 20230315
  Transmission Date: 20230418
  Serious: Yes (Death, Other)
  Sender: FDA-Public Use
  Company Number: JP-BRISTOL-MYERS SQUIBB COMPANY-2022-091735

PATIENT
  Age: 74 Year
  Sex: Male
  Weight: 74 kg

DRUGS (13)
  1. OPDIVO [Suspect]
     Active Substance: NIVOLUMAB
     Indication: Metastatic renal cell carcinoma
     Route: 041
     Dates: start: 20211029, end: 20211210
  2. YERVOY [Suspect]
     Active Substance: IPILIMUMAB
     Indication: Metastatic renal cell carcinoma
     Dosage: 64.4 MG
     Route: 041
     Dates: start: 20211029, end: 20211029
  3. YERVOY [Suspect]
     Active Substance: IPILIMUMAB
     Dosage: 60 MG
     Route: 041
     Dates: start: 20211119, end: 20211119
  4. YERVOY [Suspect]
     Active Substance: IPILIMUMAB
     Dosage: 62.1 MG
     Route: 041
     Dates: start: 20211210, end: 20211210
  5. LANSOPRAZOLE [Concomitant]
     Active Substance: LANSOPRAZOLE
     Indication: Product used for unknown indication
     Dosage: 30 MG, EVERYDAY
     Route: 048
     Dates: start: 20210609
  6. ACETAMINOPHEN [Concomitant]
     Active Substance: ACETAMINOPHEN
     Indication: Product used for unknown indication
     Dosage: 500 MG, Q8H
     Route: 048
     Dates: start: 20210621
  7. MAGNESIUM OXIDE [Concomitant]
     Active Substance: MAGNESIUM OXIDE
     Indication: Product used for unknown indication
     Dosage: 330 MG, Q8H
     Route: 048
     Dates: start: 20210713
  8. METOCLOPRAMIDE [Concomitant]
     Active Substance: METOCLOPRAMIDE
     Indication: Prophylaxis
     Dosage: 5 MG, Q8H
     Route: 048
     Dates: start: 20210604
  9. BELSOMRA [Concomitant]
     Active Substance: SUVOREXANT
     Indication: Product used for unknown indication
     Dosage: 15 MG, EVERYDAY
     Route: 048
     Dates: start: 20210806
  10. OLANZAPINE [Concomitant]
     Active Substance: OLANZAPINE
     Indication: Product used for unknown indication
     Dosage: 5 MG, EVERYDAY
     Route: 048
     Dates: start: 20210618
  11. CARBOCYSTEINE [Concomitant]
     Active Substance: CARBOCYSTEINE
     Indication: Prophylaxis
     Dosage: 100 MG, Q8H
     Route: 048
     Dates: start: 20210907
  12. SILODOSIN OD [Concomitant]
     Indication: Product used for unknown indication
     Dosage: 4 MG, Q12H
     Route: 048
     Dates: start: 20210624
  13. ALFACALCIDOL [Concomitant]
     Active Substance: ALFACALCIDOL
     Indication: Prophylaxis
     Dosage: 1 G, EVERYDAY?1?G, EVERYDAY
     Route: 048
     Dates: start: 20210611

REACTIONS (4)
  - Malignant neoplasm progression [Fatal]
  - Pulmonary alveolar haemorrhage [Recovered/Resolved]
  - Drug eruption [Unknown]
  - Secondary adrenocortical insufficiency [Unknown]

NARRATIVE: CASE EVENT DATE: 20211228
